FAERS Safety Report 13640057 (Version 1)
Quarter: 2017Q2

REPORT INFORMATION
  Report Type: Spontaneous
  Country: US (occurrence: US)
  Receive Date: 20170609
  Receipt Date: 20170609
  Transmission Date: 20170830
  Serious: No
  Sender: FDA-Public Use
  Company Number: US-ROCHE-1472191

PATIENT
  Sex: Female

DRUGS (7)
  1. EPIPEN [Concomitant]
     Active Substance: EPINEPHRINE
     Indication: FOOD ALLERGY
     Dosage: USE FOR ALLERGIC REACTION AS NEEDED
     Route: 065
  2. KLONOPIN [Suspect]
     Active Substance: CLONAZEPAM
     Indication: SEIZURE
  3. CLONAZEPAM. [Suspect]
     Active Substance: CLONAZEPAM
     Indication: MIGRAINE
     Route: 048
  4. CLONAZEPAM. [Suspect]
     Active Substance: CLONAZEPAM
     Indication: ANXIETY
  5. CLONAZEPAM. [Suspect]
     Active Substance: CLONAZEPAM
     Indication: SEIZURE
  6. KLONOPIN [Suspect]
     Active Substance: CLONAZEPAM
     Indication: MIGRAINE
     Route: 065
     Dates: start: 2005
  7. KLONOPIN [Suspect]
     Active Substance: CLONAZEPAM
     Indication: ANXIETY

REACTIONS (3)
  - Oral pruritus [Recovered/Resolved]
  - Lip swelling [Recovered/Resolved]
  - Drug ineffective [Unknown]
